FAERS Safety Report 4291897-7 (Version None)
Quarter: 2004Q1

REPORT INFORMATION
  Report Type: 
  Country: None (occurrence: None)
  Receive Date: 20040211
  Receipt Date: 20020617
  Transmission Date: 20041129
  Serious: No
  Sender: FDA-Public Use
  Company Number: US-GLAXOSMITHKLINE-A0372883A

PATIENT
  Age: 37 Year
  Sex: Female

DRUGS (1)
  1. LAMICTAL [Suspect]
     Indication: DEPRESSION
     Dosage: 25MG PER DAY
     Route: 048
     Dates: start: 20020608, end: 20020612

REACTIONS (5)
  - CONTUSION [None]
  - FATIGUE [None]
  - MOUTH ULCERATION [None]
  - RASH [None]
  - VAGINAL MUCOSAL BLISTERING [None]
